FAERS Safety Report 4524181-4 (Version None)
Quarter: 2005Q1

REPORT INFORMATION
  Report Type: 
  Country: None (occurrence: None)
  Receive Date: 20041119
  Receipt Date: 20040922
  Transmission Date: 20050727
  Serious: No
  Sender: FDA-Public Use
  Company Number: 208837

PATIENT
  Age: 48 Year
  Sex: Male
  Weight: 68.9 kg

DRUGS (1)
  1. RAPTIVA [Suspect]
     Indication: PSORIASIS
     Dosage: 0.7 ML. 1/WEEK, SUBCUTANEOUS
     Route: 058
     Dates: start: 20031112, end: 20040901

REACTIONS (1)
  - LYMPHOCYTE COUNT INCREASED [None]
